FAERS Safety Report 25335334 (Version 1)
Quarter: 2025Q2

REPORT INFORMATION
  Report Type: Spontaneous
  Country: US (occurrence: US)
  Receive Date: 20250520
  Receipt Date: 20250520
  Transmission Date: 20250717
  Serious: Yes (Hospitalization, Other)
  Sender: AUROBINDO
  Company Number: US-AUROBINDO-AUR-APL-2025-024805

PATIENT
  Age: 30 Year
  Sex: Female

DRUGS (7)
  1. HYDROMORPHONE [Suspect]
     Active Substance: HYDROMORPHONE
     Indication: Chest pain
     Route: 048
  2. ACETAMINOPHEN [Suspect]
     Active Substance: ACETAMINOPHEN
     Indication: Pain
     Route: 065
  3. METHOCARBAMOL [Suspect]
     Active Substance: METHOCARBAMOL
     Indication: Muscle spasms
     Route: 065
  4. ROPIVACAINE HYDROCHLORIDE [Suspect]
     Active Substance: ROPIVACAINE HYDROCHLORIDE
     Indication: Chest pain
     Route: 065
  5. BUPRENORPHINE [Suspect]
     Active Substance: BUPRENORPHINE
     Indication: Chest pain
     Dosage: 0.15 MILLIGRAM, FOUR TIMES/DAY
     Route: 042
  6. MORPHINE [Suspect]
     Active Substance: MORPHINE
     Indication: Chest pain
     Route: 042
  7. LIDOCAINE [Suspect]
     Active Substance: LIDOCAINE
     Indication: Physiotherapy
     Route: 065

REACTIONS (3)
  - Withdrawal syndrome [Unknown]
  - Nausea [Recovered/Resolved]
  - Vomiting [Recovered/Resolved]
